FAERS Safety Report 6042071-5 (Version None)
Quarter: 2009Q1

REPORT INFORMATION
  Report Type: 
  Country: None (occurrence: None)
  Receive Date: 20090116
  Receipt Date: 20080429
  Transmission Date: 20090719
  Serious: No
  Sender: FDA-Public Use
  Company Number: US-BAYER-200812084BCC

PATIENT
  Age: 84 Year
  Sex: Female
  Weight: 95 kg

DRUGS (3)
  1. ALEVE (CAPLET) [Suspect]
     Indication: ARTHRALGIA
     Dosage: TOTAL DAILY DOSE: 660 MG  UNIT DOSE: 220 MG
     Route: 048
     Dates: start: 20080301
  2. ASPIRIN [Concomitant]
     Route: 048
  3. CALCIUM [Concomitant]

REACTIONS (1)
  - CONSTIPATION [None]
